FAERS Safety Report 10643038 (Version 1)
Quarter: 2014Q4

REPORT INFORMATION
  Report Type: Spontaneous
  Country: US (occurrence: None)
  Receive Date: 20141209
  Receipt Date: 20141209
  Transmission Date: 20150529
  Serious: Yes (Hospitalization, Other)
  Sender: FDA-Public Use
  Company Number: None

PATIENT
  Age: 40 Year
  Sex: Female
  Weight: 103.87 kg

DRUGS (19)
  1. PALIPERIDONE (INVEGA) [Concomitant]
  2. LORATADINE. [Concomitant]
     Active Substance: LORATADINE
  3. FOLIC ACID. [Concomitant]
     Active Substance: FOLIC ACID
  4. METFORMIN HYDROCHLORIDE (METFORMIN ER) [Concomitant]
  5. ESCITALOPRAM OXALATE (LEXAPRO) [Concomitant]
  6. LISINOPRIL. [Concomitant]
     Active Substance: LISINOPRIL
  7. INVOKANA [Suspect]
     Active Substance: CANAGLIFLOZIN
     Indication: DIABETES MELLITUS INADEQUATE CONTROL
     Dosage: 1 TABLET
     Route: 048
     Dates: start: 20141015, end: 20141124
  8. BENZTROPINE MESYLATE. [Concomitant]
     Active Substance: BENZTROPINE MESYLATE
  9. GLUCOSE METER TEST CONTROL [Concomitant]
  10. OMEPRAZOLE (PRILOSEC) [Concomitant]
  11. GABAPENTIN (NEURONTIN) [Concomitant]
  12. HYDROXYZINE HYDROCHLORIDE (HYDROXYZINE) [Concomitant]
  13. PRENATAL VITAMINS [Concomitant]
     Active Substance: VITAMINS
  14. ATENOLOL. [Concomitant]
     Active Substance: ATENOLOL
  15. GLIPIZIDE (GLUCOTROL XL) [Concomitant]
  16. LEVETIRACETAM. [Concomitant]
     Active Substance: LEVETIRACETAM
  17. MESTRANOL/NORETHIDRONE [Concomitant]
  18. LANCET DEVICE [Concomitant]
  19. CYANOCOBALAMIN. [Concomitant]
     Active Substance: CYANOCOBALAMIN

REACTIONS (4)
  - Hypotension [None]
  - Dehydration [None]
  - Fluid intake reduced [None]
  - Weight decreased [None]

NARRATIVE: CASE EVENT DATE: 20141024
